APPROVED DRUG PRODUCT: FURADANTIN
Active Ingredient: NITROFURANTOIN
Strength: 50MG/5ML
Dosage Form/Route: SUSPENSION;ORAL
Application: N009175 | Product #002
Applicant: CASPER PHARMA LLC
Approved: Jun 9, 2023 | RLD: Yes | RS: Yes | Type: RX